FAERS Safety Report 17952312 (Version 3)
Quarter: 2020Q4

REPORT INFORMATION
  Report Type: Report from Study
  Country: None (occurrence: US)
  Receive Date: 20200627
  Receipt Date: 20201124
  Transmission Date: 20210113
  Serious: Yes (Other)
  Sender: FDA-Public Use
  Company Number: US-ABBVIE-19K-163-2787323-00

PATIENT
  Age: 82 Year
  Sex: Male
  Weight: 63.56 kg

DRUGS (11)
  1. VENCLEXTA [Suspect]
     Active Substance: VENETOCLAX
     Indication: CHRONIC LYMPHOCYTIC LEUKAEMIA
     Route: 048
     Dates: start: 20180619, end: 20180903
  2. AMLODIPINE [Suspect]
     Active Substance: AMLODIPINE BESYLATE
     Indication: HYPERTENSION
     Route: 065
  3. AMLODIPINE [Suspect]
     Active Substance: AMLODIPINE BESYLATE
     Route: 065
  4. BICALUTAMIDE. [Concomitant]
     Active Substance: BICALUTAMIDE
     Indication: PROSTATE CANCER
  5. LUPRON [Suspect]
     Active Substance: LEUPROLIDE ACETATE
     Indication: PROSTATE CANCER
     Dosage: FOR ABOUT A YEAR AND A HALF
     Route: 030
  6. VITAMIN D3 [Concomitant]
     Active Substance: CHOLECALCIFEROL
     Indication: PRODUCT USED FOR UNKNOWN INDICATION
     Dates: end: 202005
  7. VENCLEXTA [Suspect]
     Active Substance: VENETOCLAX
     Route: 048
     Dates: start: 20180904, end: 20200430
  8. VENCLEXTA [Suspect]
     Active Substance: VENETOCLAX
     Dosage: ALTERNATING 2 PILLS WITH ONE PILL
     Route: 048
     Dates: start: 202005, end: 20200530
  9. VENCLEXTA [Suspect]
     Active Substance: VENETOCLAX
     Dosage: 300 MG EVERY OTHER DAY ALTERNATING WITH 200 MG EVERY OTHER DAY
     Route: 048
     Dates: start: 20200501, end: 20200515
  10. IRON [Suspect]
     Active Substance: IRON
     Indication: BLOOD IRON DECREASED
     Route: 048
  11. ALLOPURINOL. [Concomitant]
     Active Substance: ALLOPURINOL
     Indication: BLOOD URIC ACID

REACTIONS (26)
  - Intentional product misuse [Not Recovered/Not Resolved]
  - Neutrophil count decreased [Unknown]
  - Renal disorder [Recovering/Resolving]
  - Haemoglobin decreased [Recovered/Resolved]
  - Pyrexia [Recovered/Resolved]
  - Chronic obstructive pulmonary disease [Not Recovered/Not Resolved]
  - Iron binding capacity total decreased [Not Recovered/Not Resolved]
  - Haemoglobin decreased [Not Recovered/Not Resolved]
  - Prostate cancer [Unknown]
  - Skin lesion [Not Recovered/Not Resolved]
  - Gastrointestinal motility disorder [Unknown]
  - Red blood cell count decreased [Unknown]
  - Joint stiffness [Unknown]
  - Chronic obstructive pulmonary disease [Recovered/Resolved]
  - Blood iron decreased [Unknown]
  - Hair colour changes [Not Recovered/Not Resolved]
  - Blood glucose increased [Not Recovered/Not Resolved]
  - Asthenia [Recovering/Resolving]
  - Hypotension [Unknown]
  - Temperature intolerance [Unknown]
  - Blood glucose fluctuation [Recovering/Resolving]
  - Musculoskeletal stiffness [Not Recovered/Not Resolved]
  - White blood cell count decreased [Recovering/Resolving]
  - Blood creatinine increased [Not Recovered/Not Resolved]
  - Serum ferritin increased [Unknown]
  - Constipation [Recovering/Resolving]

NARRATIVE: CASE EVENT DATE: 2018
